FAERS Safety Report 19392250 (Version 1)
Quarter: 2021Q2

REPORT INFORMATION
  Report Type: Other
  Country: US (occurrence: US)
  Receive Date: 20210609
  Receipt Date: 20210609
  Transmission Date: 20210717
  Serious: Yes (Other)
  Sender: FDA-Public Use
  Company Number: US-INTERCEPT-PM2021001873

PATIENT
  Age: 58 Year
  Sex: Female

DRUGS (7)
  1. VITAMIN D [VITAMIN D NOS] [Concomitant]
     Active Substance: VITAMIN D NOS
  2. NADOLOL. [Concomitant]
     Active Substance: NADOLOL
     Indication: PORTAL HYPERTENSION
  3. URSODIOL. [Concomitant]
     Active Substance: URSODIOL
     Dosage: 1200 MILLIGRAM, QD
  4. URSODIOL. [Concomitant]
     Active Substance: URSODIOL
     Indication: PRIMARY BILIARY CHOLANGITIS
     Dosage: 500 MILLIGRAM, BID
  5. OCALIVA [Suspect]
     Active Substance: OBETICHOLIC ACID
     Dosage: 5 MILLIGRAM, 2X/WK
     Route: 048
     Dates: start: 2020
  6. OCALIVA [Suspect]
     Active Substance: OBETICHOLIC ACID
     Indication: PRIMARY BILIARY CHOLANGITIS
     Dosage: 5 MILLIGRAM, QW
     Route: 048
     Dates: start: 202009
  7. CALCIUM [Concomitant]
     Active Substance: CALCIUM

REACTIONS (11)
  - Pruritus [Recovering/Resolving]
  - Portal shunt [Unknown]
  - Cholecystectomy [Recovered/Resolved]
  - Splenomegaly [Unknown]
  - Gastritis erosive [Unknown]
  - Headache [Unknown]
  - Spider naevus [Not Recovered/Not Resolved]
  - Abdominal pain upper [Unknown]
  - Portal hypertensive gastropathy [Unknown]
  - Aortic arteriosclerosis [Unknown]
  - Fatigue [Recovering/Resolving]

NARRATIVE: CASE EVENT DATE: 20200529
